FAERS Safety Report 16370271 (Version 1)
Quarter: 2019Q2

REPORT INFORMATION
  Report Type: Spontaneous
  Country: US (occurrence: US)
  Receive Date: 20190530
  Receipt Date: 20190530
  Transmission Date: 20190711
  Serious: No
  Sender: FDA-Public Use
  Company Number: US-TORRENT-00008261

PATIENT
  Sex: Male

DRUGS (1)
  1. DARIFENACIN. [Suspect]
     Active Substance: DARIFENACIN
     Indication: BLADDER PAIN
     Dosage: UNKNOWN

REACTIONS (1)
  - Micturition urgency [Recovered/Resolved]
